FAERS Safety Report 9959102 (Version 2)
Quarter: 2014Q1

REPORT INFORMATION
  Report Type: Spontaneous
  Country: NL (occurrence: None)
  Receive Date: 20140228
  Receipt Date: 20140324
  Transmission Date: 20141002
  Serious: Yes (Hospitalization, Congenital Anomaly)
  Sender: FDA-Public Use
  Company Number: AUR-APL-2014-02025

PATIENT
  Age: 0 Day
  Sex: Male
  Weight: 3.3 kg

DRUGS (3)
  1. SERTRALINE [Suspect]
     Indication: DEPRESSION
     Route: 064
     Dates: start: 20130626
  2. ESCITALOPRAM [Suspect]
     Indication: DEPRESSION
     Route: 064
     Dates: end: 20130626
  3. FOLIC ACID (FOLIC ACID) [Concomitant]

REACTIONS (3)
  - Respiratory failure [None]
  - Coarctation of the aorta [None]
  - Maternal drugs affecting foetus [None]
